FAERS Safety Report 10158191 (Version 1)
Quarter: 2014Q2

REPORT INFORMATION
  Report Type: Spontaneous
  Country: FR (occurrence: FR)
  Receive Date: 20140507
  Receipt Date: 20140507
  Transmission Date: 20141212
  Serious: Yes (Hospitalization)
  Sender: FDA-Public Use
  Company Number: PHHY2014FR053717

PATIENT
  Age: 21 Year
  Sex: Male
  Weight: 80 kg

DRUGS (9)
  1. LEPONEX [Suspect]
     Dosage: UNK
     Route: 048
     Dates: start: 20140405, end: 20140405
  2. OLANZAPINE [Suspect]
     Dosage: UNK UKN, UNK
     Route: 048
     Dates: start: 20140405, end: 20140405
  3. XEROQUEL [Suspect]
     Dosage: UNK UKN, UNK
     Route: 048
     Dates: start: 20140405, end: 20140405
  4. EFFEXOR [Suspect]
     Dosage: UNK UKN, UNK
     Dates: start: 20140405, end: 20140405
  5. EFFEXOR [Suspect]
     Dosage: 75 MG, QD
     Route: 048
  6. ZYPREXA [Suspect]
     Dosage: 1 DF, QD
  7. LEVOTHYROX [Concomitant]
     Dosage: 25 UG, QD
     Dates: end: 20140405
  8. TERCIAN [Concomitant]
     Dosage: 12.5 MG, BID
  9. DEPAMIDE [Concomitant]
     Dosage: 2 DF, BID

REACTIONS (3)
  - Pneumonia aspiration [Recovered/Resolved]
  - Somnolence [Recovered/Resolved]
  - Blood creatine phosphokinase increased [Recovered/Resolved]
